FAERS Safety Report 24991953 (Version 1)
Quarter: 2025Q1

REPORT INFORMATION
  Report Type: Other
  Country: IL (occurrence: IL)
  Receive Date: 20250220
  Receipt Date: 20250220
  Transmission Date: 20250409
  Serious: Yes (Hospitalization, Other)
  Sender: BRECKENRIDGE PHARMACEUTICAL, INC.
  Company Number: IL-Breckenridge Pharmaceutical, Inc.-2171454

PATIENT
  Age: 69 Year
  Sex: Female

DRUGS (3)
  1. EVEROLIMUS [Suspect]
     Active Substance: EVEROLIMUS
     Indication: Breast cancer
  2. EXEMESTANE [Suspect]
     Active Substance: EXEMESTANE
  3. ZOLEDRONIC ACID [Suspect]
     Active Substance: ZOLEDRONIC ACID

REACTIONS (2)
  - Renal tubular necrosis [Recovered/Resolved]
  - Blood creatinine increased [Recovered/Resolved]
